FAERS Safety Report 11597827 (Version 2)
Quarter: 2015Q4

REPORT INFORMATION
  Report Type: Spontaneous
  Country: US (occurrence: US)
  Receive Date: 20151006
  Receipt Date: 20151125
  Transmission Date: 20160304
  Serious: Yes (Hospitalization, Other)
  Sender: FDA-Public Use
  Company Number: US-ELI_LILLY_AND_COMPANY-US201509009936

PATIENT
  Sex: Male
  Weight: 91.61 kg

DRUGS (9)
  1. HUMALOG [Suspect]
     Active Substance: INSULIN LISPRO
     Dosage: 15 U, WITH EACH MEAL
     Route: 058
  2. HUMALOG [Suspect]
     Active Substance: INSULIN LISPRO
     Dosage: 15 U, WITH EACH MEAL
     Route: 058
  3. LEVEMIR [Concomitant]
     Active Substance: INSULIN DETEMIR
  4. INVOKANA [Concomitant]
     Active Substance: CANAGLIFLOZIN
     Dosage: 300 MG, UNKNOWN
  5. NIACIN. [Concomitant]
     Active Substance: NIACIN
  6. HUMALOG [Suspect]
     Active Substance: INSULIN LISPRO
     Indication: TYPE 2 DIABETES MELLITUS
     Dosage: 20 U, QD
     Route: 058
     Dates: start: 20111102
  7. NADOLOL. [Concomitant]
     Active Substance: NADOLOL
     Dosage: 40 MG, UNKNOWN
  8. HUMALOG [Suspect]
     Active Substance: INSULIN LISPRO
     Indication: TYPE 2 DIABETES MELLITUS
     Dosage: UNK UNK, QD
     Route: 058
     Dates: start: 20111102
  9. AVAPRO [Concomitant]
     Active Substance: IRBESARTAN
     Dosage: 150 MG, UNKNOWN

REACTIONS (7)
  - Oesophageal varices haemorrhage [Unknown]
  - Gastric polyps [Unknown]
  - Diabetes mellitus [Unknown]
  - Weight increased [Unknown]
  - Hepatic cirrhosis [Unknown]
  - Weight decreased [Recovered/Resolved]
  - Increased insulin requirement [Unknown]

NARRATIVE: CASE EVENT DATE: 2011
